FAERS Safety Report 5560331-9 (Version None)
Quarter: 2007Q4

REPORT INFORMATION
  Report Type: 
  Country: None (occurrence: None)
  Receive Date: 20071214
  Receipt Date: 20071031
  Transmission Date: 20080405
  Serious: No
  Sender: FDA-Public Use
  Company Number: US-ABBOTT-07P-163-0423578-00

PATIENT
  Sex: Female
  Weight: 87.168 kg

DRUGS (3)
  1. HUMIRA [Suspect]
     Indication: RHEUMATOID ARTHRITIS
     Route: 058
     Dates: start: 20071031
  2. HUMIRA [Suspect]
     Route: 058
     Dates: start: 20070829, end: 20071031
  3. MIXTARD HUMAN 70/30 [Concomitant]
     Indication: DIABETES MELLITUS
     Route: 058

REACTIONS (3)
  - DRUG INEFFECTIVE [None]
  - PAIN [None]
  - SWELLING [None]
